FAERS Safety Report 4758934-4 (Version None)
Quarter: 2005Q3

REPORT INFORMATION
  Report Type: 
  Country: None (occurrence: None)
  Receive Date: 20050901
  Receipt Date: 20050817
  Transmission Date: 20060218
  Serious: Yes (Hospitalization)
  Sender: FDA-Public Use
  Company Number: 200512377JP

PATIENT
  Age: 61 Year
  Sex: Female

DRUGS (3)
  1. ALLEGRA [Suspect]
     Route: 048
     Dates: start: 20050802
  2. CELESTAMINE TAB [Concomitant]
  3. CYANOCOBALAMIN [Concomitant]

REACTIONS (3)
  - GRANULOCYTE COUNT DECREASED [None]
  - PLATELET COUNT DECREASED [None]
  - VIRAL INFECTION [None]
